FAERS Safety Report 9319252 (Version 3)
Quarter: 2013Q3

REPORT INFORMATION
  Report Type: Spontaneous
  Country: US (occurrence: None)
  Receive Date: 20130524
  Receipt Date: 20130731
  Transmission Date: 20140515
  Serious: Yes (Other)
  Sender: FDA-Public Use
  Company Number: ACO_36238_2013

PATIENT
  Age: 63 Year
  Sex: Female
  Weight: 68 kg

DRUGS (3)
  1. AMPYRA [Suspect]
     Indication: MULTIPLE SCLEROSIS
     Route: 048
     Dates: start: 20130503, end: 20130527
  2. AMPYRA [Suspect]
     Route: 048
     Dates: start: 20130503, end: 20130527
  3. LISINOPRIL (LISINOPRIL) [Concomitant]

REACTIONS (3)
  - Blood pressure diastolic increased [None]
  - Drug ineffective [None]
  - Abasia [None]
